FAERS Safety Report 10277734 (Version 3)
Quarter: 2014Q3

REPORT INFORMATION
  Report Type: Spontaneous
  Country: CH (occurrence: CH)
  Receive Date: 20140704
  Receipt Date: 20140911
  Transmission Date: 20150326
  Serious: Yes (Hospitalization, Other)
  Sender: FDA-Public Use
  Company Number: CH-PFIZER INC-2014179032

PATIENT
  Age: 28 Year
  Sex: Male
  Weight: 100 kg

DRUGS (22)
  1. VENLAFAXINE HCL [Suspect]
     Active Substance: VENLAFAXINE HYDROCHLORIDE
     Indication: DEPRESSION
     Dosage: UNK
     Route: 048
     Dates: start: 2010, end: 20120930
  2. VENLAFAXINE HCL [Suspect]
     Active Substance: VENLAFAXINE HYDROCHLORIDE
     Dosage: 150 MG, 1X/DAY
     Route: 048
     Dates: start: 20131030, end: 20140105
  3. VENLAFAXINE HCL [Suspect]
     Active Substance: VENLAFAXINE HYDROCHLORIDE
     Dosage: 262.5 MG, 1X/DAY
     Route: 048
     Dates: start: 20140603
  4. DIPIPERON [Suspect]
     Active Substance: PIPAMPERONE
     Dosage: 120 MG, AS NEEDED
     Dates: start: 20130917
  5. STILNOX [Suspect]
     Active Substance: ZOLPIDEM TARTRATE
     Indication: INSOMNIA
     Dosage: 10 MG, 1X/DAY
     Dates: start: 20130917
  6. ZYPREXA [Concomitant]
     Active Substance: OLANZAPINE
     Indication: INSOMNIA
     Dosage: 10 MG, 1X/DAY, AS NEEDED
  7. DIPIPERON [Suspect]
     Active Substance: PIPAMPERONE
     Dosage: 40 MG, 4X/DAY, AS NEEDED
  8. XANAX [Concomitant]
     Active Substance: ALPRAZOLAM
     Dosage: 2 MG, DAILY
  9. VENLAFAXINE HCL [Suspect]
     Active Substance: VENLAFAXINE HYDROCHLORIDE
     Dosage: 337.5 MG, 1X/DAY
     Route: 048
     Dates: start: 20121001, end: 20121119
  10. PRAZINE [Suspect]
     Active Substance: PROMAZINE HYDROCHLORIDE
     Dosage: 100 MG, 1X/DAY
  11. VENLAFAXINE HCL [Suspect]
     Active Substance: VENLAFAXINE HYDROCHLORIDE
     Dosage: 375 MG, 1X/DAY
     Route: 048
     Dates: start: 20121120, end: 20130222
  12. VENLAFAXINE HCL [Suspect]
     Active Substance: VENLAFAXINE HYDROCHLORIDE
     Dosage: 75 MG, 1X/DAY
     Route: 048
     Dates: start: 20130311, end: 20130324
  13. VENLAFAXINE HCL [Suspect]
     Active Substance: VENLAFAXINE HYDROCHLORIDE
     Dosage: 150 MG, 1X/DAY
     Route: 048
     Dates: start: 20130325, end: 201305
  14. MIRTAZAPINE. [Suspect]
     Active Substance: MIRTAZAPINE
     Dosage: 30 MG, UNK
     Dates: start: 20130917, end: 201406
  15. LYRICA [Concomitant]
     Active Substance: PREGABALIN
     Indication: CONVULSION PROPHYLAXIS
     Dosage: 300 MG, 2X/DAY
  16. VENLAFAXINE HCL [Suspect]
     Active Substance: VENLAFAXINE HYDROCHLORIDE
     Dosage: 225 MG, 1X/DAY
     Route: 048
     Dates: start: 20140106, end: 20140602
  17. DEPAKINE [Suspect]
     Active Substance: VALPROATE SODIUM
     Indication: MOOD SWINGS
     Dosage: UNK
     Dates: end: 2011
  18. VENLAFAXINE HCL [Suspect]
     Active Substance: VENLAFAXINE HYDROCHLORIDE
     Dosage: 75 MG, 1X/DAY
     Route: 048
     Dates: start: 201310, end: 20131029
  19. DEPAKINE [Suspect]
     Active Substance: VALPROATE SODIUM
     Indication: CONVULSION PROPHYLAXIS
     Dosage: 300 MG, 2X/DAY
     Dates: start: 201302, end: 20130409
  20. VENLAFAXINE HCL [Suspect]
     Active Substance: VENLAFAXINE HYDROCHLORIDE
     Dosage: 75 MG, 1X/DAY
     Route: 048
     Dates: start: 201305, end: 201305
  21. VENLAFAXINE HCL [Suspect]
     Active Substance: VENLAFAXINE HYDROCHLORIDE
     Dosage: 150 MG, 1X/DAY
     Route: 048
     Dates: start: 201306, end: 20131004
  22. TEMESTA [Suspect]
     Active Substance: LORAZEPAM
     Dosage: 5 MG, DAILY

REACTIONS (25)
  - Generalised tonic-clonic seizure [Recovered/Resolved]
  - Depression [Recovered/Resolved]
  - Infection [Unknown]
  - Accidental overdose [Recovered/Resolved]
  - Alanine aminotransferase increased [Unknown]
  - Aspartate aminotransferase increased [Unknown]
  - Thrombocytosis [Unknown]
  - Leukocytosis [Unknown]
  - Antidepressant drug level increased [Not Recovered/Not Resolved]
  - Pain [Not Recovered/Not Resolved]
  - Blood alkaline phosphatase increased [Unknown]
  - Dependence [Unknown]
  - Irritability [Recovered/Resolved]
  - Malaise [Recovered/Resolved]
  - Joint dislocation [Recovering/Resolving]
  - Humerus fracture [Recovering/Resolving]
  - Avulsion fracture [Recovering/Resolving]
  - C-reactive protein increased [Unknown]
  - Anxiety [Recovered/Resolved]
  - Mental impairment [Recovered/Resolved]
  - Hepatitis [Unknown]
  - Aggression [Recovered/Resolved]
  - Impaired work ability [Not Recovered/Not Resolved]
  - Insomnia [Not Recovered/Not Resolved]
  - Impaired driving ability [Not Recovered/Not Resolved]

NARRATIVE: CASE EVENT DATE: 20121106
